FAERS Safety Report 17362598 (Version 1)
Quarter: 2020Q1

REPORT INFORMATION
  Report Type: Spontaneous
  Country: US (occurrence: US)
  Receive Date: 20200202
  Receipt Date: 20200202
  Transmission Date: 20200409
  Serious: No
  Sender: FDA-Public Use
  Company Number: None

PATIENT
  Age: 83 Year
  Sex: Male
  Weight: 75 kg

DRUGS (2)
  1. DULOXETINE. [Suspect]
     Active Substance: DULOXETINE
     Indication: NEURALGIA
     Dates: start: 20190319
  2. DULOXETINE. [Concomitant]
     Active Substance: DULOXETINE
     Dates: start: 20190319

REACTIONS (1)
  - Night sweats [None]

NARRATIVE: CASE EVENT DATE: 20200202
